FAERS Safety Report 10478682 (Version 1)
Quarter: 2014Q3

REPORT INFORMATION
  Report Type: Report from Study
  Country: DE (occurrence: DE)
  Receive Date: 20140926
  Receipt Date: 20140926
  Transmission Date: 20150326
  Serious: Yes (Hospitalization)
  Sender: FDA-Public Use
  Company Number: DE-BRISTOL-MYERS SQUIBB COMPANY-21415294

PATIENT
  Sex: Male
  Weight: 80 kg

DRUGS (8)
  1. EVEROLIMUS [Suspect]
     Active Substance: EVEROLIMUS
  2. PREDNISONE. [Suspect]
     Active Substance: PREDNISONE
  3. CICLOSPORIN [Suspect]
     Active Substance: CYCLOSPORINE
  4. BELATACEPT [Suspect]
     Active Substance: BELATACEPT
  5. SIROLIMUS. [Suspect]
     Active Substance: SIROLIMUS
  6. TACROLIMUS. [Suspect]
     Active Substance: TACROLIMUS
  7. MYCOPHENOLATE MOFETIL. [Suspect]
     Active Substance: MYCOPHENOLATE MOFETIL
  8. MYCOPHENOLATE SODIUM [Suspect]
     Active Substance: MYCOPHENOLATE SODIUM

REACTIONS (1)
  - Angioplasty [Recovered/Resolved]

NARRATIVE: CASE EVENT DATE: 20140910
